FAERS Safety Report 6502033-8 (Version None)
Quarter: 2009Q4

REPORT INFORMATION
  Report Type: 
  Country: None (occurrence: None)
  Receive Date: 20091214
  Receipt Date: 20091130
  Transmission Date: 20100525
  Serious: Yes (Hospitalization)
  Sender: FDA-Public Use
  Company Number: 2009BM000331

PATIENT
  Age: 10 Year
  Sex: Female
  Weight: 25 kg

DRUGS (3)
  1. NAGLAZYME [Suspect]
     Indication: MUCOPOLYSACCHARIDOSIS VI
     Dosage: 4 VIALS; QW; IVDRP
     Route: 041
     Dates: start: 20090205, end: 20091113
  2. DIPYRONE [Concomitant]
  3. POLARAMINE [Concomitant]

REACTIONS (11)
  - COUGH [None]
  - DISORDER OF ORBIT [None]
  - ERYTHEMA OF EYELID [None]
  - EYELID OEDEMA [None]
  - HEADACHE [None]
  - INFECTION [None]
  - LACRIMATION INCREASED [None]
  - NEUTROPHIL PERCENTAGE INCREASED [None]
  - RESPIRATORY DISORDER [None]
  - VOMITING [None]
  - WHITE BLOOD CELL COUNT DECREASED [None]
